FAERS Safety Report 19820468 (Version 1)
Quarter: 2021Q3

REPORT INFORMATION
  Report Type: Spontaneous
  Country: US (occurrence: US)
  Receive Date: 20210911
  Receipt Date: 20210911
  Transmission Date: 20211014
  Serious: Yes (Other)
  Sender: FDA-Public Use
  Company Number: None

PATIENT
  Age: 33 Year
  Sex: Male
  Weight: 65.7 kg

DRUGS (9)
  1. CALCIUM [Concomitant]
     Active Substance: CALCIUM
  2. XIFAXAN [Suspect]
     Active Substance: RIFAXIMIN
     Indication: IRRITABLE BOWEL SYNDROME
     Dosage: ?          QUANTITY:1 CAPSULE(S);?
     Route: 048
     Dates: start: 20210902
  3. ZINC. [Concomitant]
     Active Substance: ZINC
  4. L?ARGANINE [Concomitant]
  5. IBGARD [Concomitant]
     Active Substance: PEPPERMINT OIL
  6. MEN^S MULTI VITAMIN [Concomitant]
  7. XIFAXAN [Suspect]
     Active Substance: RIFAXIMIN
     Indication: GASTROINTESTINAL BACTERIAL OVERGROWTH
     Dosage: ?          QUANTITY:1 CAPSULE(S);?
     Route: 048
     Dates: start: 20210902
  8. LECITHIN [Concomitant]
     Active Substance: LECITHIN
  9. MAGNESIUM [Concomitant]
     Active Substance: MAGNESIUM

REACTIONS (5)
  - Depressed mood [None]
  - Anxiety [None]
  - Mood swings [None]
  - Aggression [None]
  - Crying [None]

NARRATIVE: CASE EVENT DATE: 20210911
